FAERS Safety Report 16944871 (Version 2)
Quarter: 2019Q4

REPORT INFORMATION
  Report Type: Spontaneous
  Country: NL (occurrence: NL)
  Receive Date: 20191022
  Receipt Date: 20191120
  Transmission Date: 20200122
  Serious: Yes (Other)
  Sender: FDA-Public Use
  Company Number: NL-ALLERGAN-1942460US

PATIENT
  Sex: Female

DRUGS (3)
  1. CITALOPRAM HYDROBROMIDE - BP [Suspect]
     Active Substance: CITALOPRAM HYDROBROMIDE
     Indication: SENSORY OVERLOAD
     Dosage: 18 MG, QD
     Route: 048
  2. CITALOPRAM HYDROBROMIDE - BP [Suspect]
     Active Substance: CITALOPRAM HYDROBROMIDE
     Indication: ORGAN FAILURE
     Dosage: 18 MG, QD
     Route: 048
  3. DIAZEPAM. [Concomitant]
     Active Substance: DIAZEPAM
     Indication: PRODUCT USED FOR UNKNOWN INDICATION
     Route: 065

REACTIONS (4)
  - Major depression [Not Recovered/Not Resolved]
  - Product use in unapproved indication [Unknown]
  - General physical health deterioration [Not Recovered/Not Resolved]
  - Anxiety [Not Recovered/Not Resolved]

NARRATIVE: CASE EVENT DATE: 2019
